FAERS Safety Report 4397582-5 (Version None)
Quarter: 2004Q3

REPORT INFORMATION
  Report Type: 
  Country: None (occurrence: None)
  Receive Date: 20040707
  Receipt Date: 20040622
  Transmission Date: 20050211
  Serious: No
  Sender: FDA-Public Use
  Company Number: CART-10298

PATIENT
  Age: 48 Year
  Sex: Female

DRUGS (1)
  1. CARTICEL [Suspect]
     Indication: ARTHROPATHY
     Dosage: 1 ONCE IS
     Dates: start: 19961001, end: 19961001

REACTIONS (4)
  - FALL [None]
  - INJURY [None]
  - KNEE ARTHROPLASTY [None]
  - OSTEOARTHRITIS [None]
